APPROVED DRUG PRODUCT: TROSPIUM CHLORIDE
Active Ingredient: TROSPIUM CHLORIDE
Strength: 60MG
Dosage Form/Route: CAPSULE, EXTENDED RELEASE;ORAL
Application: A201291 | Product #001 | TE Code: AB
Applicant: PADAGIS US LLC
Approved: May 24, 2013 | RLD: No | RS: No | Type: RX